FAERS Safety Report 20291441 (Version 2)
Quarter: 2022Q4

REPORT INFORMATION
  Report Type: Report from Study
  Country: TH (occurrence: TH)
  Receive Date: 20220104
  Receipt Date: 20221125
  Transmission Date: 20230112
  Serious: Yes (Other)
  Sender: FDA-Public Use
  Company Number: TH-NOVARTISPH-NVSC2021TH008669

PATIENT
  Sex: Male

DRUGS (112)
  1. ENTRESTO [Suspect]
     Active Substance: SACUBITRIL\VALSARTAN
     Indication: Cardiac failure
     Dosage: 0.5 DF, BID (AFTER BREAKFAST AND DINNER)
     Route: 048
  2. ENTRESTO [Suspect]
     Active Substance: SACUBITRIL\VALSARTAN
     Dosage: UNK
     Route: 065
     Dates: start: 20190320
  3. ENTRESTO [Suspect]
     Active Substance: SACUBITRIL\VALSARTAN
     Dosage: UNK
     Route: 065
     Dates: start: 20190425
  4. ENTRESTO [Suspect]
     Active Substance: SACUBITRIL\VALSARTAN
     Dosage: UNK
     Route: 065
     Dates: start: 20190505
  5. ENTRESTO [Suspect]
     Active Substance: SACUBITRIL\VALSARTAN
     Dosage: UNK
     Route: 065
     Dates: start: 20190517
  6. ENTRESTO [Suspect]
     Active Substance: SACUBITRIL\VALSARTAN
     Dosage: UNK
     Route: 065
     Dates: start: 20190528
  7. ENTRESTO [Suspect]
     Active Substance: SACUBITRIL\VALSARTAN
     Dosage: UNK
     Route: 065
     Dates: start: 20190604
  8. ENTRESTO [Suspect]
     Active Substance: SACUBITRIL\VALSARTAN
     Dosage: UNK
     Route: 065
     Dates: start: 20190613
  9. ENTRESTO [Suspect]
     Active Substance: SACUBITRIL\VALSARTAN
     Dosage: UNK
     Route: 065
     Dates: start: 20190618
  10. ENTRESTO [Suspect]
     Active Substance: SACUBITRIL\VALSARTAN
     Dosage: UNK
     Route: 065
     Dates: start: 20190625
  11. ENTRESTO [Suspect]
     Active Substance: SACUBITRIL\VALSARTAN
     Dosage: UNK
     Route: 065
     Dates: start: 20190804
  12. ENTRESTO [Suspect]
     Active Substance: SACUBITRIL\VALSARTAN
     Dosage: UNK
     Route: 065
     Dates: start: 20190815
  13. ENTRESTO [Suspect]
     Active Substance: SACUBITRIL\VALSARTAN
     Dosage: UNK
     Route: 065
     Dates: start: 20190827
  14. ENTRESTO [Suspect]
     Active Substance: SACUBITRIL\VALSARTAN
     Dosage: UNK
     Route: 065
     Dates: start: 20190908
  15. ENTRESTO [Suspect]
     Active Substance: SACUBITRIL\VALSARTAN
     Dosage: UNK
     Route: 065
     Dates: start: 20190921
  16. ENTRESTO [Suspect]
     Active Substance: SACUBITRIL\VALSARTAN
     Dosage: UNK
     Route: 065
     Dates: start: 20191005
  17. ENTRESTO [Suspect]
     Active Substance: SACUBITRIL\VALSARTAN
     Dosage: UNK
     Route: 065
     Dates: start: 20191112
  18. ENTRESTO [Suspect]
     Active Substance: SACUBITRIL\VALSARTAN
     Dosage: UNK
     Route: 065
     Dates: start: 20191001
  19. ENTRESTO [Suspect]
     Active Substance: SACUBITRIL\VALSARTAN
     Dosage: UNK
     Route: 065
     Dates: start: 20191217
  20. ENTRESTO [Suspect]
     Active Substance: SACUBITRIL\VALSARTAN
     Dosage: UNK
     Route: 065
     Dates: start: 20191225
  21. ENTRESTO [Suspect]
     Active Substance: SACUBITRIL\VALSARTAN
     Dosage: UNK
     Route: 065
     Dates: start: 20200103
  22. ENTRESTO [Suspect]
     Active Substance: SACUBITRIL\VALSARTAN
     Dosage: UNK
     Route: 065
     Dates: start: 20200114
  23. ENTRESTO [Suspect]
     Active Substance: SACUBITRIL\VALSARTAN
     Dosage: UNK
     Route: 065
     Dates: start: 20200202
  24. ENTRESTO [Suspect]
     Active Substance: SACUBITRIL\VALSARTAN
     Dosage: UNK
     Route: 065
     Dates: start: 20200211
  25. ENTRESTO [Suspect]
     Active Substance: SACUBITRIL\VALSARTAN
     Dosage: UNK
     Route: 065
     Dates: start: 20200218
  26. ENTRESTO [Suspect]
     Active Substance: SACUBITRIL\VALSARTAN
     Dosage: UNK
     Route: 065
     Dates: start: 20200504
  27. ENTRESTO [Suspect]
     Active Substance: SACUBITRIL\VALSARTAN
     Dosage: UNK
     Route: 065
     Dates: start: 20200614
  28. ENTRESTO [Suspect]
     Active Substance: SACUBITRIL\VALSARTAN
     Dosage: 0.5 MG (200 MG A HALF OF TABLET), BID
     Route: 048
     Dates: start: 20210104
  29. ENTRESTO [Suspect]
     Active Substance: SACUBITRIL\VALSARTAN
     Dosage: 1 DOSAGE FORM (200 MG A TABLET), BID
     Route: 048
     Dates: start: 20210724
  30. CARATEN [Concomitant]
     Indication: Essential hypertension
     Dosage: 1 DF, BID (AFTER BREAKFAST AND DINNER)
     Route: 048
  31. CARATEN [Concomitant]
     Indication: Angina pectoris
     Dosage: 2.25 MG, QD
     Route: 065
  32. CARATEN [Concomitant]
     Dosage: 25 MG, BID
     Route: 065
  33. CARATEN [Concomitant]
     Dosage: UNK
     Route: 065
     Dates: start: 20190320
  34. CARATEN [Concomitant]
     Dosage: UNK
     Route: 065
     Dates: start: 20190425
  35. CARATEN [Concomitant]
     Dosage: UNK
     Route: 065
     Dates: start: 20190505
  36. CARATEN [Concomitant]
     Dosage: UNK
     Route: 065
     Dates: start: 20190517
  37. CARATEN [Concomitant]
     Dosage: UNK
     Route: 065
     Dates: start: 20190528
  38. CARATEN [Concomitant]
     Dosage: UNK
     Route: 065
     Dates: start: 20190604
  39. CARATEN [Concomitant]
     Dosage: UNK
     Route: 065
     Dates: start: 20190613
  40. CARATEN [Concomitant]
     Dosage: UNK
     Route: 065
     Dates: start: 20190618
  41. CARATEN [Concomitant]
     Dosage: UNK
     Route: 065
     Dates: start: 20190625
  42. CARATEN [Concomitant]
     Dosage: UNK
     Route: 065
     Dates: start: 20190804
  43. CARATEN [Concomitant]
     Dosage: UNK
     Route: 065
     Dates: start: 20190815
  44. CARATEN [Concomitant]
     Dosage: UNK
     Route: 065
     Dates: start: 20190827
  45. CARATEN [Concomitant]
     Dosage: UNK
     Route: 065
     Dates: start: 20190908
  46. CARATEN [Concomitant]
     Dosage: UNK
     Route: 065
     Dates: start: 20190921
  47. CARATEN [Concomitant]
     Dosage: UNK
     Route: 065
     Dates: start: 20191005
  48. CARATEN [Concomitant]
     Dosage: UNK
     Route: 065
     Dates: start: 20191112
  49. CARATEN [Concomitant]
     Dosage: UNK
     Route: 065
     Dates: start: 20191217
  50. CARATEN [Concomitant]
     Dosage: UNK
     Route: 065
     Dates: start: 20191225
  51. CARATEN [Concomitant]
     Dosage: UNK
     Route: 065
     Dates: start: 20191001
  52. CARATEN [Concomitant]
     Dosage: UNK
     Route: 065
     Dates: start: 20200103
  53. CARATEN [Concomitant]
     Dosage: UNK
     Route: 065
     Dates: start: 20200114
  54. CARATEN [Concomitant]
     Dosage: UNK
     Route: 065
     Dates: start: 20200202
  55. CARATEN [Concomitant]
     Dosage: UNK
     Route: 065
     Dates: start: 20200211
  56. CARATEN [Concomitant]
     Dosage: UNK
     Route: 065
     Dates: start: 20200218
  57. CARATEN [Concomitant]
     Dosage: UNK
     Route: 065
     Dates: start: 20200504
  58. CARATEN [Concomitant]
     Dosage: UNK
     Route: 065
     Dates: start: 20200614
  59. VASTAREL [Concomitant]
     Active Substance: TRIMETAZIDINE DIHYDROCHLORIDE
     Indication: Prophylaxis
     Dosage: 1DF, BID (AFTER BREAKFAST AND DINNER)
     Route: 048
  60. VASTAREL [Concomitant]
     Active Substance: TRIMETAZIDINE DIHYDROCHLORIDE
     Indication: Dizziness
     Dosage: UNK
     Route: 065
     Dates: start: 20190320
  61. VASTAREL [Concomitant]
     Active Substance: TRIMETAZIDINE DIHYDROCHLORIDE
     Indication: Tinnitus
     Dosage: UNK
     Route: 065
     Dates: start: 20190425
  62. VASTAREL [Concomitant]
     Active Substance: TRIMETAZIDINE DIHYDROCHLORIDE
     Indication: Vision blurred
     Dosage: UNK
     Route: 065
     Dates: start: 20190505
  63. VASTAREL [Concomitant]
     Active Substance: TRIMETAZIDINE DIHYDROCHLORIDE
     Dosage: UNK
     Route: 065
     Dates: start: 20190517
  64. VASTAREL [Concomitant]
     Active Substance: TRIMETAZIDINE DIHYDROCHLORIDE
     Dosage: UNK
     Route: 065
     Dates: start: 20190528
  65. VASTAREL [Concomitant]
     Active Substance: TRIMETAZIDINE DIHYDROCHLORIDE
     Dosage: UNK
     Route: 065
     Dates: start: 20190604
  66. VASTAREL [Concomitant]
     Active Substance: TRIMETAZIDINE DIHYDROCHLORIDE
     Dosage: UNK
     Route: 065
     Dates: start: 20190613
  67. VASTAREL [Concomitant]
     Active Substance: TRIMETAZIDINE DIHYDROCHLORIDE
     Dosage: UNK
     Route: 065
     Dates: start: 20190618
  68. VASTAREL [Concomitant]
     Active Substance: TRIMETAZIDINE DIHYDROCHLORIDE
     Dosage: UNK
     Route: 065
     Dates: start: 20190625
  69. VASTAREL [Concomitant]
     Active Substance: TRIMETAZIDINE DIHYDROCHLORIDE
     Dosage: UNK
     Route: 065
     Dates: start: 20190804
  70. VASTAREL [Concomitant]
     Active Substance: TRIMETAZIDINE DIHYDROCHLORIDE
     Dosage: UNK
     Route: 065
     Dates: start: 20190815
  71. VASTAREL [Concomitant]
     Active Substance: TRIMETAZIDINE DIHYDROCHLORIDE
     Dosage: UNK
     Route: 065
     Dates: start: 20190827
  72. VASTAREL [Concomitant]
     Active Substance: TRIMETAZIDINE DIHYDROCHLORIDE
     Dosage: UNK
     Route: 065
     Dates: start: 20190908
  73. VASTAREL [Concomitant]
     Active Substance: TRIMETAZIDINE DIHYDROCHLORIDE
     Dosage: UNK
     Route: 065
     Dates: start: 20190921
  74. VASTAREL [Concomitant]
     Active Substance: TRIMETAZIDINE DIHYDROCHLORIDE
     Dosage: UNK
     Route: 065
     Dates: start: 20191005
  75. VASTAREL [Concomitant]
     Active Substance: TRIMETAZIDINE DIHYDROCHLORIDE
     Dosage: UNK
     Route: 065
     Dates: start: 20191112
  76. VASTAREL [Concomitant]
     Active Substance: TRIMETAZIDINE DIHYDROCHLORIDE
     Dosage: UNK
     Route: 065
     Dates: start: 20191217
  77. VASTAREL [Concomitant]
     Active Substance: TRIMETAZIDINE DIHYDROCHLORIDE
     Dosage: UNK
     Route: 065
     Dates: start: 20191225
  78. VASTAREL [Concomitant]
     Active Substance: TRIMETAZIDINE DIHYDROCHLORIDE
     Dosage: UNK
     Route: 065
     Dates: start: 20191001
  79. VASTAREL [Concomitant]
     Active Substance: TRIMETAZIDINE DIHYDROCHLORIDE
     Dosage: UNK
     Route: 065
     Dates: start: 20200103
  80. VASTAREL [Concomitant]
     Active Substance: TRIMETAZIDINE DIHYDROCHLORIDE
     Dosage: UNK
     Route: 065
     Dates: start: 20200114
  81. VASTAREL [Concomitant]
     Active Substance: TRIMETAZIDINE DIHYDROCHLORIDE
     Dosage: UNK
     Route: 065
     Dates: start: 20200202
  82. VASTAREL [Concomitant]
     Active Substance: TRIMETAZIDINE DIHYDROCHLORIDE
     Dosage: UNK
     Route: 065
     Dates: start: 20200211
  83. VASTAREL [Concomitant]
     Active Substance: TRIMETAZIDINE DIHYDROCHLORIDE
     Dosage: UNK
     Route: 065
     Dates: start: 20200218
  84. VASTAREL [Concomitant]
     Active Substance: TRIMETAZIDINE DIHYDROCHLORIDE
     Dosage: UNK
     Route: 065
     Dates: start: 20200504
  85. VASTAREL [Concomitant]
     Active Substance: TRIMETAZIDINE DIHYDROCHLORIDE
     Dosage: UNK
     Route: 065
     Dates: start: 20200614
  86. BESTATIN [Concomitant]
     Indication: Hyperlipidaemia
     Dosage: 1 DF, QD (AFTER DINNER)
     Route: 048
  87. BESTATIN [Concomitant]
     Indication: Medical diet
     Dosage: UNK
     Route: 065
     Dates: start: 20190320
  88. BESTATIN [Concomitant]
     Indication: Low density lipoprotein
     Dosage: UNK
     Route: 065
     Dates: start: 20190425
  89. BESTATIN [Concomitant]
     Indication: Blood triglycerides
     Dosage: UNK
     Route: 065
     Dates: start: 20190505
  90. BESTATIN [Concomitant]
     Indication: High density lipoprotein
     Dosage: UNK
     Route: 065
     Dates: start: 20190517
  91. BESTATIN [Concomitant]
     Dosage: UNK
     Route: 065
     Dates: start: 20190528
  92. BESTATIN [Concomitant]
     Dosage: UNK
     Route: 065
     Dates: start: 20190604
  93. BESTATIN [Concomitant]
     Dosage: UNK
     Route: 065
     Dates: start: 20191001
  94. BESTATIN [Concomitant]
     Dosage: UNK
     Route: 065
     Dates: start: 20190613
  95. BESTATIN [Concomitant]
     Dosage: UNK
     Route: 065
     Dates: start: 20190618
  96. BESTATIN [Concomitant]
     Dosage: UNK
     Route: 065
     Dates: start: 20190625
  97. BESTATIN [Concomitant]
     Dosage: UNK
     Route: 065
     Dates: start: 20190804
  98. BESTATIN [Concomitant]
     Dosage: UNK
     Route: 065
     Dates: start: 20190815
  99. BESTATIN [Concomitant]
     Dosage: UNK
     Route: 065
     Dates: start: 20190827
  100. BESTATIN [Concomitant]
     Dosage: UNK
     Route: 065
     Dates: start: 20190908
  101. BESTATIN [Concomitant]
     Dosage: UNK
     Route: 065
     Dates: start: 20190921
  102. BESTATIN [Concomitant]
     Dosage: UNK
     Route: 065
     Dates: start: 20191005
  103. BESTATIN [Concomitant]
     Dosage: UNK
     Route: 065
     Dates: start: 20191112
  104. BESTATIN [Concomitant]
     Dosage: UNK
     Route: 065
     Dates: start: 20191217
  105. BESTATIN [Concomitant]
     Dosage: UNK
     Route: 065
     Dates: start: 20191225
  106. BESTATIN [Concomitant]
     Dosage: UNK
     Route: 065
     Dates: start: 20200103
  107. BESTATIN [Concomitant]
     Dosage: UNK
     Route: 065
     Dates: start: 20200114
  108. BESTATIN [Concomitant]
     Dosage: UNK
     Route: 065
     Dates: start: 20200202
  109. BESTATIN [Concomitant]
     Dosage: UNK
     Route: 065
     Dates: start: 20200211
  110. BESTATIN [Concomitant]
     Dosage: UNK
     Route: 065
     Dates: start: 20200218
  111. BESTATIN [Concomitant]
     Dosage: UNK
     Route: 065
     Dates: start: 20200504
  112. BESTATIN [Concomitant]
     Dosage: UNK
     Route: 065
     Dates: start: 20200614

REACTIONS (2)
  - Congestive cardiomyopathy [Unknown]
  - Wrong technique in product usage process [Unknown]
